FAERS Safety Report 8270447-4 (Version None)
Quarter: 2012Q2

REPORT INFORMATION
  Report Type: 
  Country: None (occurrence: None)
  Receive Date: 20120410
  Receipt Date: 20120402
  Transmission Date: 20120825
  Serious: Yes (Hospitalization)
  Sender: FDA-Public Use
  Company Number: PHEH2012US003311

PATIENT
  Sex: Female

DRUGS (8)
  1. ASPIRIN [Concomitant]
  2. L-CARNITINE [Concomitant]
  3. AFINITOR [Suspect]
     Route: 048
     Dates: start: 20120223
  4. AFINITOR [Suspect]
     Dosage: 2.5 MG, DAILY
     Route: 048
     Dates: start: 20120330
  5. AFINITOR [Suspect]
     Indication: ASTROCYTOMA, LOW GRADE
     Dosage: 5 MG, DAILY
     Route: 048
     Dates: start: 20110823, end: 20120123
  6. DEPAKOTE [Concomitant]
  7. NAPROXEN (ALEVE) [Concomitant]
  8. KEPPRA [Concomitant]

REACTIONS (5)
  - PLATELET COUNT DECREASED [None]
  - ANXIETY [None]
  - WRONG TECHNIQUE IN DRUG USAGE PROCESS [None]
  - GASTROINTESTINAL MOTILITY DISORDER [None]
  - CONSTIPATION [None]
